FAERS Safety Report 7197834-X (Version None)
Quarter: 2010Q4

REPORT INFORMATION
  Report Type: 
  Country: None (occurrence: None)
  Receive Date: 20101227
  Receipt Date: 20101216
  Transmission Date: 20110411
  Serious: Yes (Other)
  Sender: FDA-Public Use
  Company Number: US-SANOFI-AVENTIS-2010SA076905

PATIENT
  Age: 77 Year
  Sex: Male

DRUGS (5)
  1. PLAVIX [Suspect]
     Route: 048
     Dates: start: 20080301, end: 20101215
  2. PLAVIX [Suspect]
     Indication: STENT PLACEMENT
     Route: 048
     Dates: start: 20080301, end: 20101215
  3. DIOVAN HCT [Concomitant]
  4. LIPITOR [Concomitant]
  5. ZYRTEC [Concomitant]

REACTIONS (8)
  - ATRIAL FIBRILLATION [None]
  - BLOOD PRESSURE ABNORMAL [None]
  - BRADYCARDIA [None]
  - CONFUSIONAL STATE [None]
  - CONTUSION [None]
  - HAEMORRHAGE [None]
  - HEART RATE INCREASED [None]
  - MEMORY IMPAIRMENT [None]
